FAERS Safety Report 21039294 (Version 1)
Quarter: 2022Q3

REPORT INFORMATION
  Report Type: Spontaneous
  Country: US (occurrence: US)
  Receive Date: 20220704
  Receipt Date: 20220704
  Transmission Date: 20221027
  Serious: Yes (Other)
  Sender: FDA-Public Use
  Company Number: US-NOVOPROD-933062

PATIENT
  Age: 75 Year
  Sex: Female

DRUGS (1)
  1. TRESIBA [Suspect]
     Active Substance: INSULIN DEGLUDEC
     Indication: Product used for unknown indication
     Dosage: 40 IU, QD
     Route: 058

REACTIONS (5)
  - Breast cancer [Recovered/Resolved]
  - Cerebrovascular accident [Not Recovered/Not Resolved]
  - Visual impairment [Not Recovered/Not Resolved]
  - Ear pruritus [Recovered/Resolved]
  - Accidental overdose [Recovered/Resolved]

NARRATIVE: CASE EVENT DATE: 20200101
